FAERS Safety Report 16486431 (Version 1)
Quarter: 2019Q2

REPORT INFORMATION
  Report Type: Spontaneous
  Country: CN (occurrence: CN)
  Receive Date: 20190627
  Receipt Date: 20190627
  Transmission Date: 20190711
  Serious: Yes (Life-Threatening, Hospitalization)
  Sender: FDA-Public Use
  Company Number: CN-NAPPMUNDI-GBR-2019-0067583

PATIENT
  Age: 77 Year
  Sex: Female
  Weight: 40 kg

DRUGS (2)
  1. MS CONTIN [Suspect]
     Active Substance: MORPHINE SULFATE
     Dosage: 30 MG, Q12H
     Route: 048
     Dates: start: 20190604
  2. MS CONTIN [Suspect]
     Active Substance: MORPHINE SULFATE
     Indication: CANCER PAIN
     Dosage: 60 MG, Q12H
     Route: 048
     Dates: start: 20190605, end: 20190606

REACTIONS (4)
  - Constipation [Recovering/Resolving]
  - Mydriasis [Recovering/Resolving]
  - Musculoskeletal stiffness [Recovering/Resolving]
  - Urinary retention [Recovering/Resolving]

NARRATIVE: CASE EVENT DATE: 20190606
